FAERS Safety Report 21202177 (Version 1)
Quarter: 2022Q3

REPORT INFORMATION
  Report Type: Spontaneous
  Country: ZA (occurrence: ZA)
  Receive Date: 20220811
  Receipt Date: 20220811
  Transmission Date: 20221026
  Serious: Yes (Other)
  Sender: FDA-Public Use
  Company Number: ZA-NOVARTISPH-NVSC2022ZA181853

PATIENT
  Age: 40 Year
  Sex: Male

DRUGS (1)
  1. SACUBITRIL\VALSARTAN [Suspect]
     Active Substance: SACUBITRIL\VALSARTAN
     Indication: Product used for unknown indication
     Dosage: UNK
     Route: 065

REACTIONS (3)
  - Congestive cardiomyopathy [Unknown]
  - Ejection fraction decreased [Unknown]
  - Off label use [Unknown]
